FAERS Safety Report 15291091 (Version 1)
Quarter: 2018Q3

REPORT INFORMATION
  Report Type: Spontaneous
  Country: US (occurrence: US)
  Receive Date: 20180817
  Receipt Date: 20180817
  Transmission Date: 20181010
  Serious: Yes (Hospitalization)
  Sender: FDA-Public Use
  Company Number: US-LUNDBECK-DKLU2053151

PATIENT
  Age: 61 Year
  Sex: Male

DRUGS (1)
  1. NORTHERA [Suspect]
     Active Substance: DROXIDOPA
     Indication: ORTHOSTATIC HYPOTENSION
     Route: 048
     Dates: start: 20180319

REACTIONS (3)
  - Syncope [Unknown]
  - Drug dose omission [Unknown]
  - Haematemesis [Unknown]

NARRATIVE: CASE EVENT DATE: 20180725
